FAERS Safety Report 20355480 (Version 1)
Quarter: 2022Q1

REPORT INFORMATION
  Report Type: Spontaneous
  Country: US (occurrence: None)
  Receive Date: 20220119
  Receipt Date: 20220119
  Transmission Date: 20220423
  Serious: Yes (Other)
  Sender: FDA-Public Use
  Company Number: None

PATIENT
  Age: 73 Year
  Sex: Male

DRUGS (7)
  1. SOTROVIMAB [Suspect]
     Active Substance: SOTROVIMAB
     Indication: COVID-19
     Dosage: FREQUENCY : ONCE;?
     Route: 042
     Dates: start: 20220112, end: 20220112
  2. acetaminophen (tablet) TYLENOL [Concomitant]
  3. colchicine (tablet) COLCRYS [Concomitant]
  4. losartan potassium (tablet) COZAAR [Concomitant]
  5. finasteride (tablet) PROSCAR [Concomitant]
  6. omeprazole (capsule,delayed release(DR/EC)) PriLOSEC [Concomitant]
  7. tamsulosin HCl (capsule) FLOMAX [Concomitant]

REACTIONS (3)
  - Back pain [None]
  - Pain in extremity [None]
  - Infusion related reaction [None]

NARRATIVE: CASE EVENT DATE: 20220112
